FAERS Safety Report 21366213 (Version 2)
Quarter: 2022Q3

REPORT INFORMATION
  Report Type: Report from Study
  Country: US (occurrence: US)
  Receive Date: 20220922
  Receipt Date: 20220930
  Transmission Date: 20221026
  Serious: No
  Sender: FDA-Public Use
  Company Number: US-ABBVIE-4127775

PATIENT
  Sex: Female

DRUGS (4)
  1. HUMIRA [Suspect]
     Active Substance: ADALIMUMAB
     Indication: Rheumatoid arthritis
     Dosage: CITRATE FREE
     Route: 058
     Dates: start: 202203
  2. Pfizer/BioNTech Covid vaccine [Concomitant]
     Indication: COVID-19 immunisation
     Dosage: 1ST DOSE?1 IN 1 ONCE
     Route: 030
  3. Pfizer/BioNTech Covid vaccine [Concomitant]
     Indication: COVID-19 immunisation
     Dosage: 2ND DOSE?1 IN 1 ONCE
     Route: 030
  4. Pfizer/BioNTech Covid vaccine [Concomitant]
     Indication: COVID-19 immunisation
     Dosage: BOOSTER DOSE??1 IN 1 ONCE
     Route: 030

REACTIONS (1)
  - Injury associated with device [Recovering/Resolving]
